FAERS Safety Report 7262953-6 (Version None)
Quarter: 2011Q1

REPORT INFORMATION
  Report Type: 
  Country: None (occurrence: None)
  Receive Date: 20110130
  Receipt Date: 20101013
  Transmission Date: 20110831
  Serious: No
  Sender: FDA-Public Use
  Company Number: US-ABBOTT-10P-163-0678828-00

PATIENT
  Sex: Female
  Weight: 51.302 kg

DRUGS (4)
  1. HUMIRA [Suspect]
     Indication: JUVENILE ARTHRITIS
     Dates: start: 20080101, end: 20080101
  2. HUMIRA [Suspect]
     Dates: start: 20090101, end: 20100210
  3. PREDNISONE [Concomitant]
     Indication: JUVENILE ARTHRITIS
     Dosage: 5-30 MG
     Dates: start: 20090101
  4. METHOTREXATE [Concomitant]
     Indication: JUVENILE ARTHRITIS
     Dates: start: 19980101

REACTIONS (4)
  - ARTHRALGIA [None]
  - JOINT SWELLING [None]
  - ERYTHEMA [None]
  - INJECTION SITE PAIN [None]
